FAERS Safety Report 7203739-8 (Version None)
Quarter: 2010Q4

REPORT INFORMATION
  Report Type: 
  Country: None (occurrence: None)
  Receive Date: 20101230
  Receipt Date: 20101227
  Transmission Date: 20110411
  Serious: Yes (Hospitalization)
  Sender: FDA-Public Use
  Company Number: BG-B.I. PHARMACEUTICALS,INC./RIDGEFIELD-2010-AP-00679AP

PATIENT
  Age: 56 Year
  Sex: Female

DRUGS (5)
  1. PRADAXA [Suspect]
     Indication: VENOUS INSUFFICIENCY
     Dosage: 220 MG
     Route: 048
     Dates: start: 20100623
  2. PRADAXA [Suspect]
     Indication: STENT PLACEMENT
  3. ASPIRIN [Concomitant]
     Indication: STENT PLACEMENT
     Dosage: 100 MG
     Dates: start: 20100623
  4. HEPARIN [Concomitant]
     Indication: STENT PLACEMENT
     Dates: start: 20100623
  5. FRAXIPARIN [Concomitant]
     Indication: STENT PLACEMENT
     Dates: start: 20100622, end: 20100623

REACTIONS (3)
  - MULTIPLE SCLEROSIS RELAPSE [None]
  - THROMBOSIS IN DEVICE [None]
  - VENOUS STENOSIS [None]
